FAERS Safety Report 4654554-0 (Version None)
Quarter: 2005Q2

REPORT INFORMATION
  Report Type: 
  Country: None (occurrence: None)
  Receive Date: 20050503
  Receipt Date: 20050503
  Transmission Date: 20051028
  Serious: Yes (Hospitalization)
  Sender: FDA-Public Use
  Company Number: None

PATIENT
  Age: 72 Year
  Sex: Female
  Weight: 94.8018 kg

DRUGS (2)
  1. ABILIFY [Suspect]
     Indication: BIPOLAR DISORDER
     Dosage: 15MG  DAILY   ORAL
     Route: 048
     Dates: start: 20050101, end: 20050323
  2. ABILIFY [Suspect]
     Indication: MANIA
     Dosage: 15MG  DAILY   ORAL
     Route: 048
     Dates: start: 20050101, end: 20050323

REACTIONS (3)
  - ASTHENIA [None]
  - COGWHEEL RIGIDITY [None]
  - MOVEMENT DISORDER [None]
